FAERS Safety Report 22292515 (Version 1)
Quarter: 2023Q2

REPORT INFORMATION
  Report Type: Spontaneous
  Country: US (occurrence: US)
  Receive Date: 20230508
  Receipt Date: 20230508
  Transmission Date: 20230721
  Serious: No
  Sender: FDA-Public Use
  Company Number: US-GBT-022159

PATIENT
  Age: 30 Year
  Sex: Female

DRUGS (1)
  1. OXBRYTA [Suspect]
     Active Substance: VOXELOTOR
     Indication: Sickle cell anaemia with crisis
     Route: 048
     Dates: start: 20210629

REACTIONS (4)
  - Sickle cell anaemia with crisis [Unknown]
  - Treatment noncompliance [Unknown]
  - Product dose omission issue [Unknown]
  - Sickle cell anaemia with crisis [Unknown]

NARRATIVE: CASE EVENT DATE: 20230421
